FAERS Safety Report 19423741 (Version 1)
Quarter: 2021Q2

REPORT INFORMATION
  Report Type: Spontaneous
  Country: US (occurrence: US)
  Receive Date: 20210616
  Receipt Date: 20210616
  Transmission Date: 20210717
  Serious: No
  Sender: FDA-Public Use
  Company Number: US-TEVA-2021-US-1919978

PATIENT
  Age: 19 Year
  Sex: Female
  Weight: 68.04 kg

DRUGS (4)
  1. PROAIR HFA [Suspect]
     Active Substance: ALBUTEROL SULFATE
     Indication: WHEEZING
  2. PROAIR HFA [Suspect]
     Active Substance: ALBUTEROL SULFATE
     Indication: COUGH
  3. PROAIR HFA [Suspect]
     Active Substance: ALBUTEROL SULFATE
     Indication: ASTHMA EXERCISE INDUCED
     Dosage: PROAIR HFA 2 PUFFS EVERY 4?6 HOURS
     Route: 065
     Dates: start: 2011
  4. PROAIR HFA [Suspect]
     Active Substance: ALBUTEROL SULFATE
     Indication: DYSPNOEA

REACTIONS (4)
  - Nasopharyngitis [Unknown]
  - Coronavirus infection [Not Recovered/Not Resolved]
  - Asthma [Unknown]
  - Urinary tract infection [Not Recovered/Not Resolved]
